FAERS Safety Report 11517498 (Version 1)
Quarter: 2015Q3

REPORT INFORMATION
  Report Type: Spontaneous
  Country: US (occurrence: US)
  Receive Date: 20150917
  Receipt Date: 20150917
  Transmission Date: 20151125
  Serious: No
  Sender: FDA-Public Use
  Company Number: US-BAYER-2015-422374

PATIENT
  Age: 27 Year
  Sex: Female
  Weight: 71.2 kg

DRUGS (2)
  1. MENSTRIDOL [Suspect]
     Active Substance: NAPROXEN SODIUM
     Indication: DYSMENORRHOEA
     Dosage: UNK,
     Route: 048
     Dates: start: 20150910
  2. DOXEPIN [Concomitant]
     Active Substance: DOXEPIN

REACTIONS (1)
  - Drug ineffective [None]
